FAERS Safety Report 21315444 (Version 2)
Quarter: 2022Q3

REPORT INFORMATION
  Report Type: Spontaneous
  Country: US (occurrence: US)
  Receive Date: 20220909
  Receipt Date: 20220914
  Transmission Date: 20221026
  Serious: No
  Sender: FDA-Public Use
  Company Number: US-ELI_LILLY_AND_COMPANY-US202209003659

PATIENT
  Age: 95 Year
  Sex: Female

DRUGS (1)
  1. FORTEO [Suspect]
     Active Substance: TERIPARATIDE
     Indication: Fracture
     Dosage: UNK UNK, UNKNOWN
     Route: 065
     Dates: start: 20220902

REACTIONS (5)
  - Heart rate increased [Unknown]
  - Tremor [Unknown]
  - Cold sweat [Unknown]
  - Fatigue [Unknown]
  - Off label use [Unknown]

NARRATIVE: CASE EVENT DATE: 20220902
